FAERS Safety Report 9238097 (Version 1)
Quarter: 2013Q2

REPORT INFORMATION
  Report Type: Spontaneous
  Country: NO (occurrence: NO)
  Receive Date: 20130418
  Receipt Date: 20130418
  Transmission Date: 20140414
  Serious: Yes (Hospitalization)
  Sender: FDA-Public Use
  Company Number: PHHY2013NO036221

PATIENT
  Age: 41 Year
  Sex: Male

DRUGS (1)
  1. VOLTAREN [Suspect]
     Indication: ARTHRALGIA
     Dosage: 50 MG, UNK
     Route: 048
     Dates: end: 201303

REACTIONS (2)
  - Nephrotic syndrome [Recovering/Resolving]
  - Oedema peripheral [Recovering/Resolving]
